FAERS Safety Report 24631712 (Version 1)
Quarter: 2024Q4

REPORT INFORMATION
  Report Type: Spontaneous
  Country: US (occurrence: None)
  Receive Date: 20241118
  Receipt Date: 20241118
  Transmission Date: 20250114
  Serious: No
  Sender: Public
  Company Number: None

PATIENT
  Sex: 0

DRUGS (1)
  1. OCREVUS [Suspect]
     Active Substance: OCRELIZUMAB

REACTIONS (5)
  - Urine abnormality [None]
  - Protein urine [None]
  - Throat tightness [None]
  - Cough [None]
  - Heart rate abnormal [None]

NARRATIVE: CASE EVENT DATE: 20241115
